FAERS Safety Report 20792475 (Version 2)
Quarter: 2022Q2

REPORT INFORMATION
  Report Type: Spontaneous
  Country: DE (occurrence: DE)
  Receive Date: 20220506
  Receipt Date: 20220621
  Transmission Date: 20220721
  Serious: Yes (Death, Other)
  Sender: FDA-Public Use
  Company Number: DE-JNJFOC-20220506504

PATIENT
  Age: 84 Year
  Sex: Male

DRUGS (8)
  1. ERLEADA [Suspect]
     Active Substance: APALUTAMIDE
     Indication: Prostate cancer metastatic
     Route: 048
  2. SALAGEN [Concomitant]
     Active Substance: PILOCARPINE HYDROCHLORIDE
     Route: 065
  3. DORZOVISION [Concomitant]
     Route: 065
  4. AMLODIPINE BESYLATE [Concomitant]
     Active Substance: AMLODIPINE BESYLATE
     Route: 065
  5. DULOXETINE [Concomitant]
     Active Substance: DULOXETINE
     Route: 065
  6. RAMIPRIL [Concomitant]
     Active Substance: RAMIPRIL
     Route: 065
  7. EFEROX [Concomitant]
     Active Substance: LEVOTHYROXINE SODIUM
     Route: 065
  8. RETINOL [Concomitant]
     Active Substance: RETINOL
     Route: 065

REACTIONS (2)
  - Craniocerebral injury [Fatal]
  - Fall [Unknown]

NARRATIVE: CASE EVENT DATE: 20220430
